FAERS Safety Report 12326618 (Version 1)
Quarter: 2016Q2

REPORT INFORMATION
  Report Type: Spontaneous
  Country: US (occurrence: None)
  Receive Date: 20160502
  Receipt Date: 20160502
  Transmission Date: 20160815
  Serious: No
  Sender: FDA-Public Use
  Company Number: None

PATIENT
  Age: 30 Year
  Sex: Female
  Weight: 51.26 kg

DRUGS (2)
  1. ADDERALL [Concomitant]
     Active Substance: AMPHETAMINE ASPARTATE\AMPHETAMINE SULFATE\DEXTROAMPHETAMINE SACCHARATE\DEXTROAMPHETAMINE SULFATE
  2. MELOXICAM. [Suspect]
     Active Substance: MELOXICAM
     Indication: TENDONITIS
     Route: 048
     Dates: start: 20160415, end: 20160430

REACTIONS (7)
  - Oropharyngeal pain [None]
  - Disturbance in attention [None]
  - Haematochezia [None]
  - Mouth ulceration [None]
  - Nasal congestion [None]
  - Fatigue [None]
  - Cough [None]

NARRATIVE: CASE EVENT DATE: 20160430
